FAERS Safety Report 15295382 (Version 1)
Quarter: 2018Q3

REPORT INFORMATION
  Report Type: Spontaneous
  Country: BE (occurrence: BE)
  Receive Date: 20180820
  Receipt Date: 20180820
  Transmission Date: 20181010
  Serious: Yes (Death, Hospitalization, Other)
  Sender: FDA-Public Use
  Company Number: PHHY2016BE187152

PATIENT
  Age: 24 Year
  Sex: Male

DRUGS (7)
  1. OLANZAPINE. [Suspect]
     Active Substance: OLANZAPINE
     Dosage: 10 MG, QD
     Route: 065
  2. PALIPERIDONE. [Suspect]
     Active Substance: PALIPERIDONE
     Dosage: 100 MG,UNK
     Route: 065
     Dates: start: 20150115, end: 20150115
  3. DERMALEX [Concomitant]
     Indication: DRY SKIN
     Dosage: UNK, QD
     Route: 003
     Dates: start: 20141225, end: 20150104
  4. PALIPERIDONE. [Suspect]
     Active Substance: PALIPERIDONE
     Dosage: UNK
     Route: 030
  5. OLANZAPINE. [Suspect]
     Active Substance: OLANZAPINE
     Indication: SCHIZOPHRENIA
     Dosage: 10 MG,QD
     Route: 048
     Dates: start: 20141223, end: 20150108
  6. CLORAZEPATE DIPOTASSIUM. [Suspect]
     Active Substance: CLORAZEPATE DIPOTASSIUM
     Indication: SCHIZOPHRENIA
     Dosage: 5 MG,QD
     Route: 065
     Dates: start: 20141223, end: 20150108
  7. PALIPERIDONE. [Suspect]
     Active Substance: PALIPERIDONE
     Indication: SCHIZOPHRENIA
     Dosage: 150 MG,UNK
     Route: 065
     Dates: start: 20150108, end: 20150108

REACTIONS (13)
  - Toxic epidermal necrolysis [Fatal]
  - Hypersensitivity [Recovering/Resolving]
  - Ocular hyperaemia [Recovering/Resolving]
  - Lip haemorrhage [Recovering/Resolving]
  - Septic shock [Recovering/Resolving]
  - Weight decreased [Recovering/Resolving]
  - Diarrhoea [Recovering/Resolving]
  - Cytomegalovirus enterocolitis [Recovering/Resolving]
  - Pyrexia [Recovering/Resolving]
  - Haemodynamic instability [Not Recovered/Not Resolved]
  - Dermatitis exfoliative generalised [Recovering/Resolving]
  - Skin exfoliation [Recovering/Resolving]
  - Rash pruritic [Recovering/Resolving]

NARRATIVE: CASE EVENT DATE: 20150202
